FAERS Safety Report 9438281 (Version 1)
Quarter: 2013Q3

REPORT INFORMATION
  Report Type: Spontaneous
  Country: US (occurrence: US)
  Receive Date: 20130802
  Receipt Date: 20130802
  Transmission Date: 20140515
  Serious: No
  Sender: FDA-Public Use
  Company Number: US-BRISTOL-MYERS SQUIBB COMPANY-17010083

PATIENT
  Age: 59 Year
  Sex: Male
  Weight: 95.24 kg

DRUGS (3)
  1. COUMADIN [Suspect]
     Indication: THROMBOSIS
     Dosage: 2.5MG ON WED: LOT#1K70757A,EXP-28AUG13?5MG: LOT#2C79832B,EXP-28AUG13?7.5MG QD
     Dates: start: 2012
  2. VITAMIN C [Suspect]
  3. LOVENOX [Suspect]
     Indication: THROMBOSIS

REACTIONS (2)
  - Nasopharyngitis [Unknown]
  - Prothrombin level decreased [Unknown]
